FAERS Safety Report 9812586 (Version 1)
Quarter: 2014Q1

REPORT INFORMATION
  Report Type: Report from Study
  Country: US (occurrence: US)
  Receive Date: 20140113
  Receipt Date: 20140113
  Transmission Date: 20141002
  Serious: Yes (Other)
  Sender: FDA-Public Use
  Company Number: US-ROCHE-1313330

PATIENT
  Sex: Male
  Weight: 66.4 kg

DRUGS (11)
  1. AVASTIN [Suspect]
     Indication: LUNG NEOPLASM MALIGNANT
     Dosage: FIRST CYCLE FOR 3 MONTHS
     Route: 065
     Dates: start: 2007
  2. NAPROSYN [Suspect]
     Indication: PAIN
     Route: 065
  3. CARBOPLATIN [Concomitant]
     Indication: LUNG NEOPLASM MALIGNANT
     Route: 065
     Dates: start: 2007
  4. GEMCITABINE [Concomitant]
     Indication: LUNG NEOPLASM MALIGNANT
     Route: 065
     Dates: start: 2007
  5. TAXOTERE [Concomitant]
     Indication: LUNG NEOPLASM MALIGNANT
     Route: 065
     Dates: start: 20111108
  6. ADVAIR DISKUS [Concomitant]
     Route: 065
  7. FENTANYL [Concomitant]
     Dosage: EVERY THREE DAYS
     Route: 062
  8. ALBUTEROL [Concomitant]
     Route: 055
  9. LORAZEPAM [Concomitant]
     Dosage: EVERY 4 HOURS
     Route: 048
  10. CLARITHROMYCIN [Concomitant]
     Route: 048
  11. NAVELBINE [Concomitant]

REACTIONS (10)
  - Pneumonectomy [Unknown]
  - Fatigue [Unknown]
  - Productive cough [Unknown]
  - Nausea [Unknown]
  - Abdominal pain [Unknown]
  - Dizziness [Unknown]
  - Appetite disorder [Unknown]
  - Disease progression [Unknown]
  - Dry mouth [Unknown]
  - Vomiting [Unknown]
